FAERS Safety Report 4639693-2 (Version None)
Quarter: 2005Q2

REPORT INFORMATION
  Report Type: 
  Country: None (occurrence: None)
  Receive Date: 20050411
  Receipt Date: 20050330
  Transmission Date: 20051028
  Serious: Yes (Death)
  Sender: FDA-Public Use
  Company Number: THYM-10456

PATIENT
  Age: 30 Year
  Sex: Male

DRUGS (1)
  1. THYMOGLOBULIN [Suspect]
     Indication: RENAL TRANSPLANT
     Dosage: 15 MG/KG IV
     Route: 042
     Dates: start: 20050201

REACTIONS (5)
  - CEREBRAL ISCHAEMIA [None]
  - DYSPNOEA [None]
  - NERVOUS SYSTEM DISORDER [None]
  - PULMONARY OEDEMA [None]
  - SPUTUM ABNORMAL [None]
